FAERS Safety Report 12891116 (Version 1)
Quarter: 2016Q4

REPORT INFORMATION
  Report Type: Spontaneous
  Country: US (occurrence: US)
  Receive Date: 20161025
  Receipt Date: 20161025
  Transmission Date: 20170207
  Serious: No
  Sender: FDA-Public Use
  Company Number: None

PATIENT
  Age: 65 Year
  Sex: Male

DRUGS (6)
  1. COSENTYX [Suspect]
     Active Substance: SECUKINUMAB
     Indication: MALIGNANT NEOPLASM OF UNKNOWN PRIMARY SITE
  2. COSENTYX [Suspect]
     Active Substance: SECUKINUMAB
     Indication: PSORIATIC ARTHROPATHY
  3. XARELTO [Concomitant]
     Active Substance: RIVAROXABAN
  4. COSENTYX [Suspect]
     Active Substance: SECUKINUMAB
     Indication: ESSENTIAL HYPERTENSION
  5. COSENTYX [Suspect]
     Active Substance: SECUKINUMAB
     Indication: HYPERLIPIDAEMIA
  6. COSENTYX [Suspect]
     Active Substance: SECUKINUMAB
     Indication: ARTHROPATHY

REACTIONS (2)
  - Injection site bruising [None]
  - Headache [None]

NARRATIVE: CASE EVENT DATE: 20161025
